FAERS Safety Report 6698438-5 (Version None)
Quarter: 2010Q2

REPORT INFORMATION
  Report Type: 
  Country: None (occurrence: None)
  Receive Date: 20100427
  Receipt Date: 20100419
  Transmission Date: 20101027
  Serious: Yes (Death)
  Sender: FDA-Public Use
  Company Number: JP-ROCHE-696291

PATIENT
  Age: 25 Year
  Sex: Female

DRUGS (6)
  1. DIAZEPAM [Suspect]
     Indication: SUICIDE ATTEMPT
     Route: 048
     Dates: start: 20100405, end: 20100405
  2. LEXOTAN [Suspect]
     Indication: SUICIDE ATTEMPT
     Dosage: NOTE: TAKEN AS NEEDED. DOSE FORM: PERORAL AGENT
     Route: 048
     Dates: start: 20100405, end: 20100405
  3. LEVOTOMIN [Suspect]
     Indication: SUICIDE ATTEMPT
     Dosage: TAKEN AS NEEDED
     Route: 048
     Dates: start: 20100405, end: 20100405
  4. BIOTAMIN [Suspect]
     Indication: SUICIDE ATTEMPT
     Route: 048
     Dates: start: 20100405, end: 20100405
  5. THEO-DUR [Concomitant]
     Dosage: TAKEN AS NEEDED
     Route: 048
  6. SILECE [Concomitant]
     Dosage: TAKEN AS NEEDED
     Route: 048
     Dates: start: 20100405, end: 20100405

REACTIONS (1)
  - SUICIDE ATTEMPT [None]
